FAERS Safety Report 7599596-0 (Version None)
Quarter: 2011Q3

REPORT INFORMATION
  Report Type: 
  Country: None (occurrence: None)
  Receive Date: 20110711
  Receipt Date: 20090205
  Transmission Date: 20111222
  Serious: Yes (Death, Hospitalization)
  Sender: FDA-Public Use
  Company Number: US-BAYER-200912307NA

PATIENT
  Age: 79 Year
  Sex: Male
  Weight: 81.633 kg

DRUGS (24)
  1. ALLOPURINOL [Concomitant]
     Dosage: 300 MG, QD
     Route: 048
  2. ACETYLSALICYLIC ACID SRT [Concomitant]
     Dosage: 325 MG, QD
     Route: 048
  3. LOPRESSOR [Concomitant]
     Dosage: 50 MG, QD
     Route: 048
  4. FENTANYL [Concomitant]
     Dosage: 40 MG, UNK
     Route: 042
     Dates: start: 20030812
  5. RED BLOOD CELLS [Concomitant]
     Dosage: 3 U, UNK
     Route: 042
     Dates: start: 20030812
  6. LASIX [Concomitant]
     Indication: FLUID RETENTION
     Dosage: 40 MG TWICE DAILY
     Route: 048
     Dates: start: 20030204
  7. ACIPHEX [Concomitant]
     Dosage: 20 MG, QD
     Route: 048
  8. FRESH FROZEN PLASMA [Concomitant]
     Dosage: 12 U, UNK
     Route: 042
     Dates: start: 20030812
  9. PLATELETS [Concomitant]
     Dosage: 2 U, UNK
     Route: 042
     Dates: start: 20030812
  10. LASIX [Concomitant]
     Indication: DYSPNOEA
     Dosage: 40 MG, QD
     Route: 048
  11. COREG [Concomitant]
     Dosage: 25 MG TWICE DAILY
     Route: 048
  12. PROTAMINE SULFATE [Concomitant]
     Dosage: 415 MG, UNK, TOTAL
     Route: 042
     Dates: start: 20030812
  13. CEFAZOLIN [Concomitant]
     Dosage: 1 G, X2
     Route: 042
     Dates: start: 20030812
  14. TRASYLOL [Suspect]
     Dosage: 400 MG, ONCE
     Route: 042
     Dates: start: 20030812, end: 20030812
  15. LASIX [Concomitant]
     Dosage: 20 MG, UNK
     Route: 042
     Dates: start: 20030812
  16. COREG [Concomitant]
     Dosage: 25 MG, BID
     Route: 048
     Dates: start: 20030715
  17. HEPARIN [Concomitant]
     Dosage: 40000 U, UNK
     Route: 042
     Dates: start: 20030812, end: 20030812
  18. TRASYLOL [Suspect]
     Indication: CORONARY ARTERY BYPASS
     Dosage: 1 ML, ONCE, INITIAL TEST DOSE
     Route: 042
     Dates: start: 20030812, end: 20030812
  19. TRASYLOL [Suspect]
     Dosage: 50ML/HR INFUSION
     Route: 042
     Dates: start: 20030812, end: 20030812
  20. CONTRAST MEDIA [Concomitant]
     Indication: CATHETERISATION CARDIAC
     Dosage: UNK
     Dates: start: 20030724
  21. ZOCOR [Concomitant]
     Dosage: 80 MG, QD
     Route: 048
  22. HEPARIN [Concomitant]
     Dosage: 29000 U, UNK
     Route: 042
     Dates: start: 20030812
  23. VANCOMYCIN [Concomitant]
     Dosage: 2 G, UNK, STERNAL PASTE
     Dates: start: 20030812, end: 20030812
  24. VERSED [Concomitant]
     Dosage: 10 MG, UNK
     Route: 042

REACTIONS (4)
  - RENAL FAILURE [None]
  - UNEVALUABLE EVENT [None]
  - INJURY [None]
  - PAIN [None]
